FAERS Safety Report 17188161 (Version 1)
Quarter: 2019Q4

REPORT INFORMATION
  Report Type: Spontaneous
  Country: FR (occurrence: FR)
  Receive Date: 20191221
  Receipt Date: 20191221
  Transmission Date: 20200122
  Serious: Yes (Death)
  Sender: FDA-Public Use
  Company Number: FR-TEVA-2019-FR-1154776

PATIENT
  Age: 90 Year
  Sex: Male
  Weight: 58 kg

DRUGS (8)
  1. SOLU-MEDROL [Suspect]
     Active Substance: METHYLPREDNISOLONE SODIUM SUCCINATE
     Dosage: FREEZE-DRIED AND PARENTERAL SOLUTION,  900 MG PER DAY
     Route: 040
     Dates: start: 20190718, end: 20190720
  2. MONOPROST 50 MICROGRAMMES/ML, COLLYRE EN SOLUTION EN RECIPIENT UNIDOSE [Concomitant]
     Indication: GLAUCOMA
     Dosage: 1 GTT PER DAY
     Route: 047
  3. SOLU-MEDROL [Suspect]
     Active Substance: METHYLPREDNISOLONE SODIUM SUCCINATE
     Indication: TEMPORAL ARTERITIS
     Dosage: 900 MG, FREEZE-DRIED AND PARENTERAL SOLUTION
     Route: 040
     Dates: start: 20190920, end: 20190922
  4. SPECIAFOLDINE 5 MG, COMPRIME [Concomitant]
     Active Substance: FOLIC ACID
     Indication: ANAEMIA FOLATE DEFICIENCY
     Dosage: 10 MG PER WEEK
     Route: 048
     Dates: start: 201907, end: 20191118
  5. ZOXAN LP 4 MG, COMPRIME A LIBERATION PROLONGEE [Concomitant]
     Indication: BENIGN PROSTATIC HYPERPLASIA
     Dosage: 4 MG PER DAY
     Route: 048
  6. PREDNISONE. [Suspect]
     Active Substance: PREDNISONE
     Indication: TEMPORAL ARTERITIS
     Dosage: INITIAL DOSAGE 40 MG/D, (DOSE: 30 MG PER DAY)
     Route: 048
     Dates: start: 201907, end: 20191121
  7. METOJECT 15 MG/0,30 ML, SOLUTION INJECTABLE EN STYLO PREREMPLI [Suspect]
     Active Substance: METHOTREXATE SODIUM
     Indication: TEMPORAL ARTERITIS
     Dosage: 15 MG PER WEEK
     Route: 058
     Dates: start: 20190920, end: 20191118
  8. KARDEGIC [Concomitant]
     Active Substance: ASPIRIN DL-LYSINE
     Indication: TEMPORAL ARTERITIS
     Dosage: 75 MG PER DAY
     Route: 048
     Dates: start: 201907, end: 20191116

REACTIONS (1)
  - Pneumonia [Fatal]

NARRATIVE: CASE EVENT DATE: 20191115
